FAERS Safety Report 21374610 (Version 1)
Quarter: 2022Q3

REPORT INFORMATION
  Report Type: Spontaneous
  Country: ZA (occurrence: ZA)
  Receive Date: 20220926
  Receipt Date: 20220926
  Transmission Date: 20221027
  Serious: Yes (Hospitalization)
  Sender: FDA-Public Use
  Company Number: ZA-NOVOPROD-957351

PATIENT
  Age: 40 Year
  Sex: Female
  Weight: 87 kg

DRUGS (4)
  1. NOVORAPID [Suspect]
     Active Substance: INSULIN ASPART
     Indication: Product used for unknown indication
     Dosage: 6 UNITS BEFORE EACH MEAL
  2. NOVORAPID [Suspect]
     Active Substance: INSULIN ASPART
     Dosage: 8 IU, TID
  3. LEVEMIR [Suspect]
     Active Substance: INSULIN DETEMIR
     Dosage: 12 IU, TID
  4. LEVEMIR [Suspect]
     Active Substance: INSULIN DETEMIR
     Indication: Product used for unknown indication
     Dosage: 10 UNITS AT BEDTIME

REACTIONS (4)
  - Bronchitis [Unknown]
  - Diabetes mellitus inadequate control [Unknown]
  - Fatigue [Unknown]
  - Maternal exposure during pregnancy [Unknown]
